FAERS Safety Report 8339611-X (Version None)
Quarter: 2012Q2

REPORT INFORMATION
  Report Type: 
  Country: None (occurrence: None)
  Receive Date: 20120507
  Receipt Date: 20110527
  Transmission Date: 20120825
  Serious: No
  Sender: FDA-Public Use
  Company Number: US-TEVA-2011002724

PATIENT
  Sex: Female
  Weight: 54.48 kg

DRUGS (7)
  1. PRASTERONE [Concomitant]
     Dates: start: 20101201
  2. NUVIGIL [Suspect]
     Indication: CIRCADIAN RHYTHM SLEEP DISORDER
     Dosage: 50 MILLIGRAM;
     Route: 048
     Dates: start: 20110512
  3. BIEST [Concomitant]
     Dates: start: 20101201
  4. AMPHOTERICIN B [Concomitant]
     Dates: start: 20101201
  5. NUVIGIL [Suspect]
     Indication: ATTENTION DEFICIT/HYPERACTIVITY DISORDER
     Route: 048
     Dates: start: 20110512
  6. LEVOTHYROXINE T4 [Concomitant]
  7. FLUCONAZOLE [Concomitant]
     Dates: start: 20101201

REACTIONS (7)
  - IMPATIENCE [None]
  - SPEECH DISORDER [None]
  - DRUG TOLERANCE [None]
  - DISTURBANCE IN ATTENTION [None]
  - THERAPEUTIC RESPONSE UNEXPECTED [None]
  - ENERGY INCREASED [None]
  - EUPHORIC MOOD [None]
